FAERS Safety Report 17939993 (Version 1)
Quarter: 2020Q2

REPORT INFORMATION
  Report Type: Report from Study
  Country: MX (occurrence: MX)
  Receive Date: 20200624
  Receipt Date: 20200624
  Transmission Date: 20200714
  Serious: Yes (Other)
  Sender: FDA-Public Use
  Company Number: NVSC2020MX177395

PATIENT
  Age: 72 Year
  Sex: Female
  Weight: 63 kg

DRUGS (1)
  1. GALVUS MET [Suspect]
     Active Substance: METFORMIN HYDROCHLORIDE\VILDAGLIPTIN
     Indication: BLOOD GLUCOSE ABNORMAL
     Dosage: 1 DF, QD
     Route: 048
     Dates: start: 20140914

REACTIONS (1)
  - Deafness [Unknown]

NARRATIVE: CASE EVENT DATE: 20160116
